FAERS Safety Report 13368707 (Version 1)
Quarter: 2017Q1

REPORT INFORMATION
  Report Type: Report from Study
  Country: DE (occurrence: DE)
  Receive Date: 20170324
  Receipt Date: 20170324
  Transmission Date: 20170429
  Serious: Yes (Life-Threatening, Hospitalization)
  Sender: FDA-Public Use
  Company Number: DE-TEVA-750496GER

PATIENT
  Age: 73 Year
  Sex: Female

DRUGS (25)
  1. PREDNISOLON [Concomitant]
     Active Substance: PREDNISOLONE
     Indication: PREMEDICATION
     Dates: start: 20120306, end: 20120821
  2. VINCRISTINE [Suspect]
     Active Substance: VINCRISTINE
     Indication: B-CELL LYMPHOMA
     Dosage: LAST DOSE PRIOR EVENT: 08-MAY-2012
     Route: 040
     Dates: start: 20120306
  3. PREDNISONE. [Suspect]
     Active Substance: PREDNISONE
     Indication: B-CELL LYMPHOMA
     Dosage: LAST DOSE PRIOR EVENT: 12-MAY-2012
     Route: 048
     Dates: start: 20120307
  4. RITUXIMAB [Suspect]
     Active Substance: RITUXIMAB
     Indication: B-CELL LYMPHOMA
     Dosage: LAST DOSE PRIOR EVENT: 08-MAY-2012, 375 ML
     Route: 042
     Dates: start: 20120306
  5. EMEND [Concomitant]
     Active Substance: APREPITANT
     Indication: PREMEDICATION
     Dates: start: 20120306, end: 20120621
  6. ACICLOVIR [Concomitant]
     Active Substance: ACYCLOVIR
     Indication: HERPES ZOSTER
     Dates: start: 20120614
  7. UROMITEXAN [Concomitant]
     Active Substance: MESNA
     Indication: PREMEDICATION
  8. PANTOZOL [Concomitant]
     Active Substance: PANTOPRAZOLE SODIUM
     Indication: DYSPEPSIA
  9. ZOMETA [Concomitant]
     Active Substance: ZOLEDRONIC ACID
     Dates: start: 20120724, end: 20120724
  10. GRANISETRON [Concomitant]
     Active Substance: GRANISETRON
     Indication: PREMEDICATION
     Dates: start: 20120206
  11. CALCILAC [Concomitant]
     Active Substance: CALCIUM CARBONATE
     Indication: HYPERTHYROIDISM
     Dates: start: 20120608
  12. DOXORUBICIN [Suspect]
     Active Substance: DOXORUBICIN
     Indication: B-CELL LYMPHOMA
     Dosage: LAST DOSE PRIOR EVENT: 08-MAR-2014
     Route: 042
     Dates: start: 20120306
  13. DOXORUBICIN [Suspect]
     Active Substance: DOXORUBICIN
     Dosage: LAST DOSE PRIOR EVENT: 26-JAN-2012
     Route: 042
     Dates: start: 20161124
  14. CYCLOPHOSPHAMID [Suspect]
     Active Substance: CYCLOPHOSPHAMIDE
     Indication: B-CELL LYMPHOMA
     Dosage: LAST DOSE PRIOR EVENT: 08-MAY-2012
     Route: 042
     Dates: start: 20120306
  15. CYCLOPHOSPHAMID [Suspect]
     Active Substance: CYCLOPHOSPHAMIDE
     Dosage: LAST DOSE PRIOR EVENT: 26-JAN-2012
     Route: 042
     Dates: start: 20120126
  16. NOVALGIN [Concomitant]
     Active Substance: METAMIZOLE SODIUM
     Indication: BONE PAIN
     Dates: start: 20120509
  17. RANITIDIN [Concomitant]
     Active Substance: RANITIDINE HYDROCHLORIDE
     Indication: PREMEDICATION
     Dates: start: 20120306, end: 20140811
  18. ZOMETA [Concomitant]
     Active Substance: ZOLEDRONIC ACID
     Dates: start: 20120628, end: 20120628
  19. PARACETAMOL [Concomitant]
     Active Substance: ACETAMINOPHEN
     Indication: PYREXIA
  20. IRENAT [Concomitant]
     Active Substance: SODIUM PERCHLORATE MONOHYDRATE
     Dates: start: 20121001, end: 20121008
  21. CELEBREX [Concomitant]
     Active Substance: CELECOXIB
     Indication: BACK PAIN
  22. VINCRISTINE [Suspect]
     Active Substance: VINCRISTINE
     Dosage: LAST DOSE PRIOR EVENT: 26-JAN-2012
     Route: 042
     Dates: start: 20111124
  23. RITUXIMAB [Suspect]
     Active Substance: RITUXIMAB
     Dosage: LAST DOSE PRIOR EVENT: 26-JAN-2012
     Route: 042
     Dates: start: 20120126
  24. IBUPROFEN. [Concomitant]
     Active Substance: IBUPROFEN
     Indication: BONE PAIN
     Dates: start: 20120515
  25. CELEBREX [Concomitant]
     Active Substance: CELECOXIB
     Indication: BONE PAIN
     Dates: start: 201206

REACTIONS (3)
  - Leukopenia [Recovered/Resolved]
  - Neutropenia [Recovered/Resolved]
  - Lumbar vertebral fracture [Not Recovered/Not Resolved]

NARRATIVE: CASE EVENT DATE: 20120509
